FAERS Safety Report 16178225 (Version 1)
Quarter: 2019Q2

REPORT INFORMATION
  Report Type: Spontaneous
  Country: FR (occurrence: FR)
  Receive Date: 20190410
  Receipt Date: 20190410
  Transmission Date: 20190711
  Serious: Yes (Hospitalization)
  Sender: FDA-Public Use
  Company Number: FR-ROCHE-2300004

PATIENT
  Age: 32 Year
  Sex: Male
  Weight: 66 kg

DRUGS (4)
  1. VALIUM [Suspect]
     Active Substance: DIAZEPAM
     Indication: ANXIETY
     Dosage: UNIT DOSE: 90 [DRP]
     Route: 048
     Dates: start: 20190318
  2. THERALENE [Suspect]
     Active Substance: TRIMEPRAZINE
     Indication: SLEEP DISORDER THERAPY
     Dosage: UNIT DOSE: 10 [DRP]
     Route: 048
     Dates: start: 20190318, end: 20190322
  3. DEPAMIDE [Concomitant]
     Active Substance: VALPROMIDE
     Route: 048
  4. RISPERDAL [Suspect]
     Active Substance: RISPERIDONE
     Indication: IMPULSIVE BEHAVIOUR
     Route: 048
     Dates: start: 20190320, end: 20190320

REACTIONS (1)
  - Priapism [Recovered/Resolved]

NARRATIVE: CASE EVENT DATE: 20190321
